FAERS Safety Report 10227380 (Version 2)
Quarter: 2016Q2

REPORT INFORMATION
  Report Type: Spontaneous
  Country: US (occurrence: US)
  Receive Date: 20140610
  Receipt Date: 20160620
  Transmission Date: 20160815
  Serious: No
  Sender: FDA-Public Use
  Company Number: US-PFIZER INC-2014155337

PATIENT
  Age: 84 Year
  Sex: Female
  Weight: 74.83 kg

DRUGS (5)
  1. TRAMADOL HCL [Suspect]
     Active Substance: TRAMADOL HYDROCHLORIDE
     Dosage: UNK
  2. DARVOCET [Suspect]
     Active Substance: ACETAMINOPHEN\PROPOXYPHENE HYDROCHLORIDE
     Dosage: UNK
  3. GABAPENTIN. [Suspect]
     Active Substance: GABAPENTIN
     Dosage: UNK
  4. ACICLOVIR [Suspect]
     Active Substance: ACYCLOVIR
     Dosage: UNK
  5. HYDROCODONE [Suspect]
     Active Substance: HYDROCODONE
     Dosage: UNK

REACTIONS (1)
  - Drug hypersensitivity [Unknown]
